FAERS Safety Report 8356635-7 (Version None)
Quarter: 2012Q2

REPORT INFORMATION
  Report Type: 
  Country: None (occurrence: None)
  Receive Date: 20120511
  Receipt Date: 20120511
  Transmission Date: 20120825
  Serious: No
  Sender: FDA-Public Use
  Company Number: None

PATIENT
  Sex: Male
  Weight: 110 kg

DRUGS (11)
  1. LIDOCAINE 2.5% + PRILOCAINE 2.5% [Concomitant]
  2. OXYCODONE HCL [Concomitant]
  3. BLEOMYCIN SULFATE [Suspect]
     Dosage: 22 UNIT
  4. ACYCLOVIR [Concomitant]
  5. ZOFRAN [Concomitant]
  6. DACARBAZINE [Suspect]
     Dosage: 621 MG
  7. VINBLASTINE SULFATE [Suspect]
     Dosage: 13 MG
  8. DOXORUBICIN HYDROCHLORIDE [Suspect]
     Dosage: 54 MG
  9. BACTRIM [Concomitant]
  10. MULTI-VITAMINS [Concomitant]
  11. ATIVAN [Concomitant]

REACTIONS (1)
  - NEUTROPENIA [None]
